FAERS Safety Report 25705825 (Version 1)
Quarter: 2025Q3

REPORT INFORMATION
  Report Type: Spontaneous
  Country: US (occurrence: US)
  Receive Date: 20250820
  Receipt Date: 20250820
  Transmission Date: 20251021
  Serious: Yes (Other)
  Sender: TEVA
  Company Number: US-TEVA-VS-3304569

PATIENT
  Age: 54 Year

DRUGS (8)
  1. UZEDY [Suspect]
     Active Substance: RISPERIDONE
     Indication: Panic disorder
     Route: 058
     Dates: start: 20241211
  2. UZEDY [Suspect]
     Active Substance: RISPERIDONE
     Indication: Psychotic disorder
     Dosage: FORM STRENGTH: 125/0.35MG/ML
     Route: 058
     Dates: start: 20250110
  3. UZEDY [Suspect]
     Active Substance: RISPERIDONE
     Dosage: FORM STRENGTH: 100/0.28MG/ML
     Route: 058
  4. WELLBUTRIN XL [Concomitant]
     Active Substance: BUPROPION HYDROCHLORIDE
     Indication: Product used for unknown indication
     Route: 065
  5. TRAZODONE [Concomitant]
     Active Substance: TRAZODONE HYDROCHLORIDE
     Indication: Product used for unknown indication
     Dosage: AT BEDTIME
     Route: 065
  6. BENZTROPINE [Concomitant]
     Active Substance: BENZTROPINE
     Indication: Product used for unknown indication
     Route: 065
  7. RISPERDAL [Concomitant]
     Active Substance: RISPERIDONE
     Indication: Product used for unknown indication
     Dosage: AT BEDTIME
     Route: 065
  8. ZOLOFT [Concomitant]
     Active Substance: SERTRALINE HYDROCHLORIDE
     Indication: Product used for unknown indication
     Route: 065

REACTIONS (6)
  - Hallucination, auditory [Unknown]
  - Back disorder [Unknown]
  - Product use in unapproved indication [Unknown]
  - Social avoidant behaviour [Unknown]
  - Autism spectrum disorder [Unknown]
  - Schizophrenia [Unknown]

NARRATIVE: CASE EVENT DATE: 20250110
